FAERS Safety Report 4626443-9 (Version None)
Quarter: 2005Q1

REPORT INFORMATION
  Report Type: 
  Country: None (occurrence: None)
  Receive Date: 20050330
  Receipt Date: 20050311
  Transmission Date: 20050727
  Serious: Yes (Hospitalization, Other)
  Sender: FDA-Public Use
  Company Number: USA041285018

PATIENT
  Age: 85 Year
  Sex: Female
  Weight: 54 kg

DRUGS (4)
  1. FORTEO [Suspect]
     Indication: OSTEOPOROSIS
     Dosage: 20 UG DAY
     Dates: start: 20030701, end: 20041101
  2. ASACOL [Concomitant]
  3. ACTONEL [Concomitant]
  4. ANTIHYPERTENSIVE [Concomitant]

REACTIONS (14)
  - ARTHRITIS [None]
  - BACK PAIN [None]
  - BREAST CANCER STAGE I [None]
  - BREAST PAIN [None]
  - BURNING SENSATION [None]
  - CHEST PAIN [None]
  - COUGH [None]
  - ERYTHEMA [None]
  - INCISION SITE COMPLICATION [None]
  - KYPHOSIS [None]
  - OESTROGEN RECEPTOR ASSAY POSITIVE [None]
  - PHARMACEUTICAL PRODUCT COMPLAINT [None]
  - PROGESTERONE RECEPTOR ASSAY POSITIVE [None]
  - SKIN REACTION [None]
